FAERS Safety Report 24270842 (Version 1)
Quarter: 2024Q3

REPORT INFORMATION
  Report Type: Spontaneous
  Country: US (occurrence: US)
  Receive Date: 20240831
  Receipt Date: 20240831
  Transmission Date: 20241017
  Serious: Yes (Hospitalization, Other)
  Sender: AMGEN
  Company Number: US-AMGEN-USASP2024168838

PATIENT
  Age: 39 Year
  Sex: Female

DRUGS (3)
  1. PREDNISONE [Suspect]
     Active Substance: PREDNISONE
     Indication: Crohn^s disease
     Dosage: 40 MILLIGRAM
     Route: 042
  2. ETANERCEPT [Suspect]
     Active Substance: ETANERCEPT
     Indication: Spondyloarthropathy
     Dosage: UNK
     Route: 065
  3. INFLIXIMAB [Suspect]
     Active Substance: INFLIXIMAB
     Indication: Crohn^s disease
     Dosage: UNK
     Route: 065

REACTIONS (12)
  - Crohn^s disease [Unknown]
  - Iridocyclitis [Unknown]
  - Deep vein thrombosis [Unknown]
  - Pulmonary embolism [Unknown]
  - Embolism venous [Unknown]
  - Vascular stent thrombosis [Unknown]
  - May-Thurner syndrome [Unknown]
  - Microcytic anaemia [Unknown]
  - Uterine leiomyoma [Unknown]
  - Hypotension [Unknown]
  - Blood lactic acid increased [Unknown]
  - Tachycardia [Unknown]
